FAERS Safety Report 20172493 (Version 1)
Quarter: 2021Q4

REPORT INFORMATION
  Report Type: Report from Study
  Country: MX (occurrence: MX)
  Receive Date: 20211210
  Receipt Date: 20211210
  Transmission Date: 20220304
  Serious: Yes (Other)
  Sender: FDA-Public Use
  Company Number: MX-UCBSA-2021056702

PATIENT
  Sex: Female
  Weight: 50 kg

DRUGS (1)
  1. ROTIGOTINE [Suspect]
     Active Substance: ROTIGOTINE
     Indication: Parkinson^s disease
     Dosage: UNK
     Route: 062
     Dates: start: 2020, end: 2021

REACTIONS (9)
  - Depression [Recovered/Resolved]
  - Cognitive disorder [Recovered/Resolved]
  - Application site dryness [Not Recovered/Not Resolved]
  - Application site discolouration [Not Recovered/Not Resolved]
  - Pruritus [Not Recovered/Not Resolved]
  - Balance disorder [Recovered/Resolved]
  - Application site pruritus [Recovered/Resolved]
  - Weight decreased [Recovering/Resolving]
  - Anxiety [Recovered/Resolved]
